FAERS Safety Report 13722305 (Version 1)
Quarter: 2017Q3

REPORT INFORMATION
  Report Type: Other
  Country: SE (occurrence: SE)
  Receive Date: 20170706
  Receipt Date: 20170706
  Transmission Date: 20171127
  Serious: Yes (Hospitalization)
  Sender: FDA-Public Use
  Company Number: SE-ASTELLAS-2017US025785

PATIENT
  Age: 71 Year
  Sex: Male

DRUGS (2)
  1. XGEVA [Concomitant]
     Active Substance: DENOSUMAB
     Indication: OSTEONECROSIS OF JAW
     Dosage: UNK UNK, UNKNOWN FREQ.
     Route: 065
  2. XTANDI [Suspect]
     Active Substance: ENZALUTAMIDE
     Indication: HORMONE-REFRACTORY PROSTATE CANCER
     Route: 048
     Dates: start: 20170512, end: 20170621

REACTIONS (3)
  - Hypercalcaemia [Not Recovered/Not Resolved]
  - Palpitations [Unknown]
  - Confusional state [Unknown]

NARRATIVE: CASE EVENT DATE: 20170620
